FAERS Safety Report 14958572 (Version 1)
Quarter: 2018Q2

REPORT INFORMATION
  Report Type: Spontaneous
  Country: GB (occurrence: GB)
  Receive Date: 20180531
  Receipt Date: 20180531
  Transmission Date: 20180711
  Serious: Yes (Other)
  Sender: FDA-Public Use
  Company Number: GB-TEVA-2018-GB-899739

PATIENT
  Age: 71 Year
  Sex: Female
  Weight: 81 kg

DRUGS (12)
  1. MOMETASONE [Concomitant]
     Active Substance: MOMETASONE
     Dosage: 2 DOSAGE FORMS DAILY; APPLY SPARINGLY TO FACE, AVOID EYES
     Dates: start: 20180207, end: 20180307
  2. PERINDOPRIL TERT-BUTYLAMINE [Concomitant]
     Active Substance: PERINDOPRIL ERBUMINE
     Dosage: 1 DOSAGE FORMS DAILY; IN THE MORNING
     Dates: start: 20170727
  3. FENBID [Concomitant]
     Active Substance: IBUPROFEN
     Indication: ANALGESIC THERAPY
     Dosage: 3 DOSAGE FORMS DAILY; APPLY 3 TIMES/DAY TO HELP WITH PAIN.
     Dates: start: 20180207, end: 20180307
  4. INDAPAMIDE. [Concomitant]
     Active Substance: INDAPAMIDE
     Dosage: 1 DOSAGE FORMS DAILY; EACH MORNING
     Dates: start: 20170727
  5. BETNOVATE [Concomitant]
     Active Substance: BETAMETHASONE
     Dosage: APPLY TO THE AFFECTED AREA ONCE OR TWICE DAILY ...
     Dates: start: 20180207, end: 20180307
  6. CLARITHROMYCIN. [Concomitant]
     Active Substance: CLARITHROMYCIN
     Dosage: 2 DOSAGE FORMS DAILY;
     Dates: start: 20180209, end: 20180216
  7. FUSIDIC ACID [Concomitant]
     Active Substance: FUSIDIC ACID
     Dosage: APPLY TO THE AFFECTED AREA THREE TO FOUR TIMES ...
     Dates: start: 20180209, end: 20180216
  8. FEXOFENADINE [Concomitant]
     Active Substance: FEXOFENADINE\FEXOFENADINE HYDROCHLORIDE
     Indication: URTICARIA
     Dosage: 1 DOSAGE FORMS DAILY;
     Dates: start: 20180205, end: 20180307
  9. DONEPEZIL HYDROCHLORIDE. [Suspect]
     Active Substance: DONEPEZIL HYDROCHLORIDE
     Indication: DEMENTIA
     Route: 065
     Dates: start: 20180201
  10. DOXAZOSIN [Concomitant]
     Active Substance: DOXAZOSIN\DOXAZOSIN MESYLATE
     Dosage: 1 DOSAGE FORMS DAILY; IN THE MORNING
     Dates: start: 20170727
  11. EUMOVATE [Concomitant]
     Active Substance: CLOBETASONE BUTYRATE
     Dosage: APPLY 1-2 TIMES/DAY
     Dates: start: 20180223, end: 20180323
  12. ROSUVASTATIN. [Concomitant]
     Active Substance: ROSUVASTATIN
     Dosage: 1 DOSAGE FORMS DAILY; AT NIGHT
     Dates: start: 20170727

REACTIONS (5)
  - Erythema [Unknown]
  - Scab [Unknown]
  - Skin exfoliation [Unknown]
  - Secretion discharge [Unknown]
  - Dermatitis allergic [Recovered/Resolved]

NARRATIVE: CASE EVENT DATE: 20180209
